FAERS Safety Report 4461369-5 (Version None)
Quarter: 2004Q3

REPORT INFORMATION
  Report Type: 
  Country: None (occurrence: None)
  Receive Date: 20040928
  Receipt Date: 20040920
  Transmission Date: 20050211
  Serious: Yes (Hospitalization, Other)
  Sender: FDA-Public Use
  Company Number: PHBS2004US12524

PATIENT
  Age: 50 Year
  Sex: Male

DRUGS (3)
  1. CYCLOSPORINE [Suspect]
     Indication: RENAL TRANSPLANT
     Route: 065
  2. AZATHIOPRINE [Suspect]
     Indication: RENAL TRANSPLANT
  3. PREDNISOLONE [Concomitant]
     Dosage: 7.5 MG, QD

REACTIONS (14)
  - COMPLICATIONS OF TRANSPLANTED KIDNEY [None]
  - COUGH [None]
  - HAEMODIALYSIS [None]
  - HERPES ZOSTER [None]
  - HYPERKERATOSIS [None]
  - LUNG NEOPLASM [None]
  - LYMPHADENOPATHY [None]
  - PYREXIA [None]
  - RENAL IMPAIRMENT [None]
  - RENAL TRANSPLANT [None]
  - SCEDOSPORIUM INFECTION [None]
  - SKIN OEDEMA [None]
  - SUBCUTANEOUS NODULE [None]
  - TRANSPLANT REJECTION [None]
